FAERS Safety Report 4497961-1 (Version None)
Quarter: 2004Q4

REPORT INFORMATION
  Report Type: 
  Country: None (occurrence: None)
  Receive Date: 20041110
  Receipt Date: 20041108
  Transmission Date: 20050328
  Serious: Yes (Hospitalization)
  Sender: FDA-Public Use
  Company Number: PHBS2004CN14934

PATIENT
  Age: 58 Year
  Sex: Female

DRUGS (1)
  1. LESCOL [Suspect]
     Indication: HYPERLIPIDAEMIA
     Dosage: 40 MG, QD
     Route: 048
     Dates: start: 20041101

REACTIONS (3)
  - DIZZINESS [None]
  - LOOSE STOOLS [None]
  - STOMACH DISCOMFORT [None]
